FAERS Safety Report 7385584-6 (Version None)
Quarter: 2011Q1

REPORT INFORMATION
  Report Type: 
  Country: None (occurrence: None)
  Receive Date: 20110331
  Receipt Date: 20110325
  Transmission Date: 20110831
  Serious: No
  Sender: FDA-Public Use
  Company Number: US-BIOGENIDEC-2011BI008728

PATIENT
  Age: 54 Year
  Sex: Female

DRUGS (8)
  1. TYSABRI [Suspect]
     Indication: MULTIPLE SCLEROSIS
     Route: 042
     Dates: start: 20101210
  2. WELLBUTRIN [Concomitant]
     Indication: FATIGUE
  3. EFFEXOR [Concomitant]
     Indication: DEPRESSION
  4. WELLBUTRIN [Concomitant]
     Indication: DEPRESSION
  5. BACLOFEN [Concomitant]
     Indication: MUSCLE SPASMS
  6. ADDERALL 10 [Concomitant]
     Indication: FATIGUE
  7. ZANAFLEX [Concomitant]
     Indication: MUSCLE SPASMS
  8. EFFEXOR [Concomitant]
     Indication: FATIGUE

REACTIONS (8)
  - FATIGUE [None]
  - MULTIPLE ALLERGIES [None]
  - PAIN [None]
  - INSOMNIA [None]
  - BACK PAIN [None]
  - MUSCLE SPASMS [None]
  - MYALGIA [None]
  - NASOPHARYNGITIS [None]
